FAERS Safety Report 9995724 (Version 1)
Quarter: 2014Q1

REPORT INFORMATION
  Report Type: Spontaneous
  Country: US (occurrence: None)
  Receive Date: 20140310
  Receipt Date: 20140310
  Transmission Date: 20141002
  Serious: No
  Sender: FDA-Public Use
  Company Number: None

PATIENT
  Age: 65 Year
  Sex: Female

DRUGS (3)
  1. CIMZIA [Suspect]
     Indication: RHEUMATOID ARTHRITIS
     Dosage: 200 MG  EVERY 2 WEEKS  SUBCUTANEOUS
     Route: 058
     Dates: start: 20130301, end: 20140303
  2. VITAMIN D [Concomitant]
  3. FOLIC ACID [Concomitant]

REACTIONS (1)
  - Laryngeal cancer [None]
